FAERS Safety Report 13334696 (Version 2)
Quarter: 2017Q3

REPORT INFORMATION
  Report Type: Spontaneous
  Country: DK (occurrence: DK)
  Receive Date: 20170314
  Receipt Date: 20170815
  Transmission Date: 20171127
  Serious: Yes (Congenital Anomaly)
  Sender: FDA-Public Use
  Company Number: PHHY2017DK032601

PATIENT
  Sex: Female
  Weight: 3.72 kg

DRUGS (3)
  1. THYCAPZOL [Suspect]
     Active Substance: METHIMAZOLE
     Indication: HYPERTHYROIDISM
     Dosage: 10 MG, QD 5 MG
     Route: 064
     Dates: start: 20160822, end: 20160914
  2. THYCAPZOL [Suspect]
     Active Substance: METHIMAZOLE
     Dosage: STYRKE: 5MG
     Route: 064
     Dates: start: 20160822, end: 20160914
  3. PROPYL THIOURACIL [Suspect]
     Active Substance: PROPYLTHIOURACIL
     Indication: HYPERTHYROIDISM
     Dosage: 150 MG, BID 100+50
     Route: 064
     Dates: start: 20160914, end: 20160916

REACTIONS (1)
  - Cleft lip and palate [Not Recovered/Not Resolved]

NARRATIVE: CASE EVENT DATE: 201612
